FAERS Safety Report 16929904 (Version 1)
Quarter: 2019Q4

REPORT INFORMATION
  Report Type: Spontaneous
  Country: BG (occurrence: BG)
  Receive Date: 20191017
  Receipt Date: 20191017
  Transmission Date: 20200122
  Serious: Yes (Other)
  Sender: FDA-Public Use
  Company Number: BG-PFIZER INC-2019446946

PATIENT
  Age: 8 Year
  Sex: Male

DRUGS (1)
  1. ECALTA [Suspect]
     Active Substance: ANIDULAFUNGIN
     Dosage: UNK

REACTIONS (4)
  - Pneumomediastinum [Unknown]
  - Off label use [Unknown]
  - Systemic candida [Unknown]
  - Product administered to patient of inappropriate age [Unknown]
